FAERS Safety Report 4542142-6 (Version None)
Quarter: 2004Q4

REPORT INFORMATION
  Report Type: 
  Country: None (occurrence: None)
  Receive Date: 20041227
  Receipt Date: 20041213
  Transmission Date: 20050328
  Serious: Yes (Hospitalization)
  Sender: FDA-Public Use
  Company Number: MK200412-0302-1

PATIENT
  Age: 26 Year
  Sex: Male

DRUGS (9)
  1. ANAFRANIL [Suspect]
     Indication: DEPRESSION
     Dosage: 25 MG, IV
     Route: 042
  2. ANAFRANIL [Suspect]
     Indication: DEPRESSION
     Dosage: 175 MG DAILY
  3. VALROATE SODIUM [Concomitant]
  4. TRAZODONE HCL [Concomitant]
  5. SULPIRIDE [Concomitant]
  6. PHENYTOIN [Concomitant]
  7. FLUVOXAMINE MALEATE [Concomitant]
  8. CARBAMAZEPINE [Concomitant]
  9. AMOXAPINE [Concomitant]

REACTIONS (1)
  - COMPLEX PARTIAL SEIZURES [None]
